FAERS Safety Report 20767526 (Version 2)
Quarter: 2022Q2

REPORT INFORMATION
  Report Type: Spontaneous
  Country: US (occurrence: US)
  Receive Date: 20220429
  Receipt Date: 20220513
  Transmission Date: 20220720
  Serious: No
  Sender: FDA-Public Use
  Company Number: US-AMGEN-USASP2022069317

PATIENT
  Age: 73 Year
  Sex: Female

DRUGS (2)
  1. MVASI [Suspect]
     Active Substance: BEVACIZUMAB-AWWB
     Indication: Glioblastoma
     Dosage: 650 MILLIGRAM, Q2WK
     Route: 065
     Dates: start: 20220207, end: 20220322
  2. MVASI [Suspect]
     Active Substance: BEVACIZUMAB-AWWB
     Indication: Brain neoplasm

REACTIONS (3)
  - Neurological decompensation [Unknown]
  - General physical health deterioration [Unknown]
  - Hospice care [Unknown]
